FAERS Safety Report 6313254-1 (Version None)
Quarter: 2009Q3

REPORT INFORMATION
  Report Type: 
  Country: None (occurrence: None)
  Receive Date: 20090814
  Receipt Date: 20090803
  Transmission Date: 20100115
  Serious: Yes (Life-Threatening)
  Sender: FDA-Public Use
  Company Number: JHP200900239

PATIENT
  Sex: Female
  Weight: 50 kg

DRUGS (2)
  1. PITRESSIN [Suspect]
     Indication: HAEMOSTASIS
     Dosage: TOTAL OF 11 UNITS (0.2 UNITS/ML) INTRAMYOMETRICALLY
  2. ANESTHETICS, GENERAL [Concomitant]

REACTIONS (5)
  - CARDIAC ARREST [None]
  - ELECTROCARDIOGRAM ST SEGMENT ABNORMAL [None]
  - OFF LABEL USE [None]
  - PULMONARY VASCULAR DISORDER [None]
  - SINUS BRADYCARDIA [None]
